FAERS Safety Report 4365084-8 (Version None)
Quarter: 2004Q2

REPORT INFORMATION
  Report Type: 
  Country: None (occurrence: None)
  Receive Date: 20040520
  Receipt Date: 20040511
  Transmission Date: 20050107
  Serious: Yes (Hospitalization)
  Sender: FDA-Public Use
  Company Number: A02200401598

PATIENT
  Age: 71 Year
  Sex: Male

DRUGS (1)
  1. FASTURTEC- (RASBURICASE) - SOLUTION - 1.5 MG/ML [Suspect]
     Indication: MYELOPROLIFERATIVE DISORDER
     Dosage: INTRAVENOUS NOS
     Route: 042
     Dates: start: 20030415, end: 20031003

REACTIONS (6)
  - CUTANEOUS VASCULITIS [None]
  - GOUT [None]
  - RENAL COLIC [None]
  - SCAR [None]
  - SKIN ULCER [None]
  - VENOUS INSUFFICIENCY [None]
